FAERS Safety Report 8843122 (Version 1)
Quarter: 2012Q4

REPORT INFORMATION
  Report Type: Report from Study
  Country: CA (occurrence: CA)
  Receive Date: 20121016
  Receipt Date: 20121016
  Transmission Date: 20130627
  Serious: Yes (Hospitalization)
  Sender: FDA-Public Use
  Company Number: CA-ROCHE-1145069

PATIENT
  Sex: Female

DRUGS (9)
  1. VEMURAFENIB [Suspect]
     Indication: METASTATIC MALIGNANT MELANOMA
     Route: 048
     Dates: start: 201208
  2. CELEXA [Concomitant]
  3. SYNTHROID [Concomitant]
  4. FELBATOL [Concomitant]
  5. CEPHALEX [Concomitant]
  6. PANTOPRAZOLE [Concomitant]
  7. NAPROXEN [Concomitant]
  8. TYLENOL [Concomitant]
  9. DILAUDID [Concomitant]

REACTIONS (3)
  - Sarcoma [Not Recovered/Not Resolved]
  - Sarcoma metastatic [Not Recovered/Not Resolved]
  - Metastases to spine [Not Recovered/Not Resolved]
